FAERS Safety Report 4728345-6 (Version None)
Quarter: 2005Q3

REPORT INFORMATION
  Report Type: 
  Country: None (occurrence: None)
  Receive Date: 20050729
  Receipt Date: 20050210
  Transmission Date: 20060218
  Serious: Yes (Disabling, Other)
  Sender: FDA-Public Use
  Company Number: FR-BRISTOL-MYERS SQUIBB COMPANY-12863239

PATIENT
  Age: 55 Year
  Sex: Female

DRUGS (10)
  1. ELISOR TABS [Suspect]
     Indication: HYPERCHOLESTEROLAEMIA
     Route: 048
     Dates: start: 20020701
  2. QUESTRAN [Suspect]
     Indication: HYPERCHOLESTEROLAEMIA
     Dates: start: 19950101, end: 20020701
  3. TAHOR [Suspect]
     Indication: HYPERCHOLESTEROLAEMIA
     Route: 048
     Dates: start: 19970101, end: 20010101
  4. STALTOR [Suspect]
     Indication: HYPERCHOLESTEROLAEMIA
     Route: 048
     Dates: start: 20010101
  5. LODALES [Suspect]
     Indication: HYPERCHOLESTEROLAEMIA
     Route: 048
     Dates: start: 20030101, end: 20040101
  6. DICODIN [Concomitant]
     Dates: start: 20000101
  7. LEVOCARNIL [Concomitant]
     Dates: start: 20000101
  8. COAPROVEL [Concomitant]
     Dates: start: 19990101
  9. AMLODIPINE BESYLATE [Concomitant]
  10. LIPANTHYL [Concomitant]
     Dates: end: 20020701

REACTIONS (5)
  - ABDOMINAL PAIN [None]
  - DIARRHOEA [None]
  - DRUG INEFFECTIVE [None]
  - FIBROMYALGIA [None]
  - MUSCLE ATROPHY [None]
